FAERS Safety Report 5045544-7 (Version None)
Quarter: 2006Q2

REPORT INFORMATION
  Report Type: 
  Country: None (occurrence: None)
  Receive Date: 20060629
  Receipt Date: 20060619
  Transmission Date: 20061013
  Serious: Yes (Hospitalization)
  Sender: FDA-Public Use
  Company Number: 2006077370

PATIENT
  Age: 37 Year
  Sex: Male
  Weight: 69.5 kg

DRUGS (4)
  1. NORVASC [Suspect]
     Dosage: 10 MG (10 MG, QD), ORAL
     Route: 048
  2. HYDROCHLOROTHIAZIDE [Suspect]
     Dosage: 25 MG (25 MG, QD), ORAL
     Route: 048
  3. ATENOLOL [Suspect]
     Dosage: 100 MG (100 MG, QD), ORAL
     Route: 048
  4. ZESTRIL [Suspect]
     Dosage: 20 MG (20 MG, QD), ORAL
     Route: 048

REACTIONS (9)
  - AORTIC STENOSIS [None]
  - BIFASCICULAR BLOCK [None]
  - BUNDLE BRANCH BLOCK LEFT [None]
  - BUNDLE BRANCH BLOCK RIGHT [None]
  - CARDIAC MURMUR [None]
  - HYPERTENSION [None]
  - QRS AXIS ABNORMAL [None]
  - TENSION HEADACHE [None]
  - VENTRICULAR HYPERTROPHY [None]
